FAERS Safety Report 5897738-6 (Version None)
Quarter: 2008Q3

REPORT INFORMATION
  Report Type: 
  Country: None (occurrence: None)
  Receive Date: 20080925
  Receipt Date: 20080916
  Transmission Date: 20090109
  Serious: Yes (Other)
  Sender: FDA-Public Use
  Company Number: PHHY2008DE22046

PATIENT

DRUGS (2)
  1. GLEEVEC [Suspect]
     Indication: CHRONIC MYELOID LEUKAEMIA
     Dosage: 400 MG/DAY
     Route: 048
  2. GLEEVEC [Suspect]
     Dosage: 400 MG/DAY
     Route: 048
     Dates: start: 20080815, end: 20080827

REACTIONS (3)
  - BLOOD CREATINE PHOSPHOKINASE INCREASED [None]
  - MYALGIA [None]
  - RHABDOMYOLYSIS [None]
